FAERS Safety Report 4357949-8 (Version None)
Quarter: 2004Q2

REPORT INFORMATION
  Report Type: 
  Country: None (occurrence: None)
  Receive Date: 20040510
  Receipt Date: 20040423
  Transmission Date: 20050107
  Serious: Yes (Hospitalization)
  Sender: FDA-Public Use
  Company Number: 04-NIP00065 (0)

PATIENT
  Age: 65 Year
  Sex: Male
  Weight: 82.5547 kg

DRUGS (12)
  1. NIPENT [Suspect]
     Indication: CHRONIC LYMPHOCYTIC LEUKAEMIA
     Dosage: 4 MG/M2 (Q 3 WKS), INTRAVENOUS
     Route: 042
     Dates: start: 20040204, end: 20040325
  2. XALATAN [Concomitant]
  3. TRUSOPT [Concomitant]
  4. LABETALOL HCL [Concomitant]
  5. BACTRIM (SULFAMETHOXAZOLE/TRIMETHO/(ORAL SUSPENSION) [Concomitant]
  6. FLEXERIL [Concomitant]
  7. COLACE [Concomitant]
  8. ACYCLOVIR [Concomitant]
  9. ATIVAN [Concomitant]
  10. AMBIEN [Concomitant]
  11. NEURONTIN [Concomitant]
  12. LASIX [Concomitant]

REACTIONS (13)
  - DEHYDRATION [None]
  - DRUG TOXICITY [None]
  - DYSPNOEA [None]
  - GLOMERULONEPHRITIS [None]
  - HAEMOLYTIC URAEMIC SYNDROME [None]
  - HYPERTENSION [None]
  - HYPOTENSION [None]
  - MEDICATION ERROR [None]
  - PAIN IN EXTREMITY [None]
  - PYREXIA [None]
  - RENAL FAILURE ACUTE [None]
  - THROMBOCYTOPENIC PURPURA [None]
  - TRANSIENT ISCHAEMIC ATTACK [None]
